FAERS Safety Report 17557313 (Version 2)
Quarter: 2020Q3

REPORT INFORMATION
  Report Type: Spontaneous
  Country: JP (occurrence: JP)
  Receive Date: 20200318
  Receipt Date: 20200716
  Transmission Date: 20201102
  Serious: Yes (Other)
  Sender: FDA-Public Use
  Company Number: JP-SHIRE-JP202009373AA

PATIENT
  Age: 6 Year
  Sex: Male

DRUGS (1)
  1. GAMMAGARD S/D [Suspect]
     Active Substance: HUMAN IMMUNOGLOBULIN G
     Indication: KAWASAKI^S DISEASE
     Route: 042

REACTIONS (1)
  - Drug reaction with eosinophilia and systemic symptoms [Unknown]
